FAERS Safety Report 25452630 (Version 1)
Quarter: 2025Q2

REPORT INFORMATION
  Report Type: Spontaneous
  Country: DE (occurrence: DE)
  Receive Date: 20250618
  Receipt Date: 20250618
  Transmission Date: 20250717
  Serious: Yes (Hospitalization, Other)
  Sender: MYLAN
  Company Number: DE-SANDOZ-SDZ2025DE038998

PATIENT
  Age: 61 Year
  Sex: Male

DRUGS (28)
  1. CELECOXIB [Suspect]
     Active Substance: CELECOXIB
     Indication: Product used for unknown indication
     Dates: start: 20200902, end: 20210602
  2. CELECOXIB [Suspect]
     Active Substance: CELECOXIB
     Dates: start: 20200902, end: 20210602
  3. CELECOXIB [Suspect]
     Active Substance: CELECOXIB
     Route: 065
     Dates: start: 20200902, end: 20210602
  4. CELECOXIB [Suspect]
     Active Substance: CELECOXIB
     Route: 065
     Dates: start: 20200902, end: 20210602
  5. CELECOXIB [Suspect]
     Active Substance: CELECOXIB
     Dates: start: 20221128, end: 20250128
  6. CELECOXIB [Suspect]
     Active Substance: CELECOXIB
     Dates: start: 20221128, end: 20250128
  7. CELECOXIB [Suspect]
     Active Substance: CELECOXIB
     Route: 065
     Dates: start: 20221128, end: 20250128
  8. CELECOXIB [Suspect]
     Active Substance: CELECOXIB
     Route: 065
     Dates: start: 20221128, end: 20250128
  9. IBUPROFEN [Suspect]
     Active Substance: IBUPROFEN
     Indication: Product used for unknown indication
     Dates: start: 20101203, end: 20200901
  10. IBUPROFEN [Suspect]
     Active Substance: IBUPROFEN
     Route: 065
     Dates: start: 20101203, end: 20200901
  11. IBUPROFEN [Suspect]
     Active Substance: IBUPROFEN
     Route: 065
     Dates: start: 20101203, end: 20200901
  12. IBUPROFEN [Suspect]
     Active Substance: IBUPROFEN
     Dates: start: 20101203, end: 20200901
  13. CIMZIA [Suspect]
     Active Substance: CERTOLIZUMAB PEGOL
     Indication: Product used for unknown indication
     Dates: start: 20181212, end: 20190227
  14. CIMZIA [Suspect]
     Active Substance: CERTOLIZUMAB PEGOL
     Route: 065
     Dates: start: 20181212, end: 20190227
  15. CIMZIA [Suspect]
     Active Substance: CERTOLIZUMAB PEGOL
     Route: 065
     Dates: start: 20181212, end: 20190227
  16. CIMZIA [Suspect]
     Active Substance: CERTOLIZUMAB PEGOL
     Dates: start: 20181212, end: 20190227
  17. COSENTYX [Suspect]
     Active Substance: SECUKINUMAB
     Indication: Psoriatic arthropathy
     Dates: start: 20190507, end: 20200705
  18. COSENTYX [Suspect]
     Active Substance: SECUKINUMAB
     Dates: start: 20190507, end: 20200705
  19. COSENTYX [Suspect]
     Active Substance: SECUKINUMAB
     Route: 065
     Dates: start: 20190507, end: 20200705
  20. COSENTYX [Suspect]
     Active Substance: SECUKINUMAB
     Route: 065
     Dates: start: 20190507, end: 20200705
  21. COSENTYX [Suspect]
     Active Substance: SECUKINUMAB
  22. COSENTYX [Suspect]
     Active Substance: SECUKINUMAB
  23. COSENTYX [Suspect]
     Active Substance: SECUKINUMAB
     Route: 065
  24. COSENTYX [Suspect]
     Active Substance: SECUKINUMAB
     Route: 065
  25. COSENTYX [Suspect]
     Active Substance: SECUKINUMAB
  26. COSENTYX [Suspect]
     Active Substance: SECUKINUMAB
     Route: 065
  27. COSENTYX [Suspect]
     Active Substance: SECUKINUMAB
  28. COSENTYX [Suspect]
     Active Substance: SECUKINUMAB
     Route: 065

REACTIONS (1)
  - Atrial fibrillation [Unknown]

NARRATIVE: CASE EVENT DATE: 20231020
